FAERS Safety Report 9797428 (Version 1)
Quarter: 2014Q1

REPORT INFORMATION
  Report Type: Spontaneous
  Country: US (occurrence: US)
  Receive Date: 20140106
  Receipt Date: 20140106
  Transmission Date: 20141002
  Serious: Yes (Other)
  Sender: FDA-Public Use
  Company Number: CHPA2013US018971

PATIENT
  Age: 60 Year
  Sex: Female

DRUGS (4)
  1. TRANSDERM SCOP [Suspect]
     Indication: VERTIGO
     Dosage: 1 DF, Q72H
     Route: 062
     Dates: end: 20131227
  2. TRANSDERM SCOP [Suspect]
     Indication: MIGRAINE
  3. TRANSDERM SCOP [Suspect]
     Indication: OFF LABEL USE
  4. MECLIZINE [Suspect]
     Indication: DIZZINESS
     Dosage: UNK, UNK

REACTIONS (7)
  - Abasia [Recovering/Resolving]
  - Drug withdrawal syndrome [Unknown]
  - Malaise [Recovering/Resolving]
  - Decreased appetite [Unknown]
  - Weight decreased [Unknown]
  - Nausea [Unknown]
  - Dizziness [Recovering/Resolving]
